FAERS Safety Report 4582950-9 (Version None)
Quarter: 2005Q1

REPORT INFORMATION
  Report Type: 
  Country: None (occurrence: None)
  Receive Date: 20050127
  Receipt Date: 20040916
  Transmission Date: 20050727
  Serious: No
  Sender: FDA-Public Use
  Company Number: USA040978536

PATIENT
  Sex: Male

DRUGS (2)
  1. STRATTERA [Suspect]
     Dates: start: 20040601
  2. HIGH BLOOD PRESSURE MEDICATION [Concomitant]

REACTIONS (2)
  - EJACULATION DISORDER [None]
  - URINARY INCONTINENCE [None]
